FAERS Safety Report 8088696-7 (Version None)
Quarter: 2012Q1

REPORT INFORMATION
  Report Type: 
  Country: None (occurrence: None)
  Receive Date: 20120128
  Receipt Date: 20110412
  Transmission Date: 20120608
  Serious: No
  Sender: FDA-Public Use
  Company Number: US-ABBOTT-11P-163-0718658-00

PATIENT
  Weight: 81.72 kg

DRUGS (1)
  1. HUMIRA [Suspect]
     Indication: CROHN'S DISEASE
     Dates: start: 20090101

REACTIONS (9)
  - ACNE [None]
  - SKIN FISSURES [None]
  - ERYTHEMA [None]
  - WOUND SECRETION [None]
  - DRY SKIN [None]
  - OPEN WOUND [None]
  - PAIN [None]
  - PSORIASIS [None]
  - SKIN EXFOLIATION [None]
